FAERS Safety Report 6166881-9 (Version None)
Quarter: 2009Q2

REPORT INFORMATION
  Report Type: 
  Country: None (occurrence: None)
  Receive Date: 20090424
  Receipt Date: 20090420
  Transmission Date: 20091009
  Serious: Yes (Other)
  Sender: FDA-Public Use
  Company Number: B0557657A

PATIENT
  Sex: Female
  Weight: 30 kg

DRUGS (6)
  1. RELENZA [Suspect]
     Indication: INFLUENZA
     Dosage: 10MG PER DAY
     Route: 055
     Dates: start: 20090124, end: 20090124
  2. MEIACT [Suspect]
     Indication: OROPHARYNGEAL PAIN
     Dosage: 90MG THREE TIMES PER DAY
     Route: 048
     Dates: start: 20090123, end: 20090128
  3. MUCODYNE [Suspect]
     Indication: PRODUCTIVE COUGH
     Dosage: 250MG THREE TIMES PER DAY
     Route: 048
     Dates: start: 20090123, end: 20090128
  4. ASVERIN [Suspect]
     Indication: COUGH
     Dosage: 15MG THREE TIMES PER DAY
     Route: 048
     Dates: start: 20090123, end: 20090128
  5. ACETAMINOPHEN [Suspect]
     Dosage: 120MG PER DAY
     Route: 065
     Dates: start: 20090123, end: 20090123
  6. ANTIPYRETIC [Concomitant]
     Indication: DRUG USE FOR UNKNOWN INDICATION
     Route: 048

REACTIONS (1)
  - ABNORMAL BEHAVIOUR [None]
